FAERS Safety Report 6519383-1 (Version None)
Quarter: 2009Q4

REPORT INFORMATION
  Report Type: 
  Country: None (occurrence: None)
  Receive Date: 20091224
  Receipt Date: 20091224
  Transmission Date: 20100525
  Serious: No
  Sender: FDA-Public Use
  Company Number: None

PATIENT
  Age: 28 Year
  Sex: Female

DRUGS (1)
  1. GADOLINIUM CONTRAST [Suspect]
     Dosage: 20ML X1 IV
     Route: 042
     Dates: start: 20091216

REACTIONS (2)
  - NAUSEA [None]
  - VOMITING [None]
